FAERS Safety Report 8290405-3 (Version None)
Quarter: 2012Q2

REPORT INFORMATION
  Report Type: 
  Country: None (occurrence: None)
  Receive Date: 20120417
  Receipt Date: 20120412
  Transmission Date: 20120825
  Serious: Yes (Hospitalization)
  Sender: FDA-Public Use
  Company Number: JP-ABBOTT-12P-087-0925015-00

PATIENT
  Sex: Male
  Weight: 47.8 kg

DRUGS (7)
  1. SULFASALAZINE [Concomitant]
     Indication: CROHN'S DISEASE
     Route: 048
  2. HUMIRA [Suspect]
     Dates: start: 20110422, end: 20110422
  3. SODIUM RISEDRONATE HYDRATE [Concomitant]
     Indication: OSTEOPOROSIS
     Route: 048
  4. HUMIRA [Suspect]
     Indication: CROHN'S DISEASE
     Route: 058
     Dates: start: 20110405, end: 20110405
  5. HUMIRA [Suspect]
     Dates: start: 20110506
  6. CLOSTRIDIUM BUTYRICUM [Concomitant]
     Indication: CROHN'S DISEASE
     Route: 048
  7. MESALAMINE [Concomitant]
     Indication: CROHN'S DISEASE
     Route: 048

REACTIONS (1)
  - DEPRESSION [None]
